FAERS Safety Report 7819706-7 (Version None)
Quarter: 2011Q4

REPORT INFORMATION
  Report Type: 
  Country: None (occurrence: None)
  Receive Date: 20111018
  Receipt Date: 20110125
  Transmission Date: 20120403
  Serious: No
  Sender: FDA-Public Use
  Company Number: US-ASTRAZENECA-2010SE51608

PATIENT
  Age: 793 Month
  Sex: Female
  Weight: 68.5 kg

DRUGS (13)
  1. TRAMADOL HCL [Concomitant]
  2. TIZANIDINE HCL [Concomitant]
  3. SULINDAC [Concomitant]
  4. BONIVA [Concomitant]
  5. CITALOPRAM [Concomitant]
  6. LORATADINE [Concomitant]
  7. POTASSIUM [Concomitant]
  8. CRANBERRY FRUIT [Concomitant]
  9. FISH AND FLAX OILS [Concomitant]
  10. SYMBICORT [Suspect]
     Indication: CHRONIC OBSTRUCTIVE PULMONARY DISEASE
     Dosage: 160/ 4.5 UG BID
     Route: 055
     Dates: start: 20100901
  11. ESTRAPOPATE [Concomitant]
  12. DAILY VITAMINS AND CALCIUM WITH D [Concomitant]
  13. LOHIST 12-D [Concomitant]

REACTIONS (2)
  - INCORRECT DOSE ADMINISTERED [None]
  - VISUAL ACUITY REDUCED [None]
